FAERS Safety Report 25582535 (Version 1)
Quarter: 2025Q3

REPORT INFORMATION
  Report Type: Spontaneous
  Country: EU (occurrence: EU)
  Receive Date: 20250720
  Receipt Date: 20250720
  Transmission Date: 20251020
  Serious: Yes (Hospitalization, Other)
  Sender: AUROBINDO
  Company Number: EU-BRISTOL-MYERS SQUIBB COMPANY-2025-089133

PATIENT
  Age: 68 Year
  Sex: Female
  Weight: 60 kg

DRUGS (20)
  1. CARBOPLATIN [Suspect]
     Active Substance: CARBOPLATIN
     Indication: Non-small cell lung cancer
     Route: 042
     Dates: start: 20250318
  2. CARBOPLATIN [Suspect]
     Active Substance: CARBOPLATIN
     Route: 042
     Dates: start: 20250408, end: 20250408
  3. PACLITAXEL [Suspect]
     Active Substance: PACLITAXEL
     Indication: Non-small cell lung cancer
     Route: 042
     Dates: start: 20250318
  4. PACLITAXEL [Suspect]
     Active Substance: PACLITAXEL
     Route: 042
     Dates: start: 20250408, end: 20250408
  5. VINORELBINE [Suspect]
     Active Substance: VINORELBINE TARTRATE
     Indication: Product used for unknown indication
     Route: 042
  6. NIVOLUMAB [Suspect]
     Active Substance: NIVOLUMAB
     Indication: Non-small cell lung cancer
     Route: 042
     Dates: start: 20250318, end: 20250408
  7. CISPLATIN [Suspect]
     Active Substance: CISPLATIN
     Indication: Product used for unknown indication
     Route: 042
  8. ASPIRIN [Concomitant]
     Active Substance: ASPIRIN
     Indication: Hypertension
     Dosage: 100 MILLIGRAM, ONCE A DAY
     Route: 048
     Dates: start: 1970
  9. CITALOPRAM [Concomitant]
     Active Substance: CITALOPRAM
     Indication: Agitated depression
     Dosage: 40 MILLIGRAM, ONCE A DAY
     Route: 048
     Dates: start: 2008
  10. LISINOPRIL AND HYDROCHLOROTHIAZIDE [Concomitant]
     Active Substance: HYDROCHLOROTHIAZIDE\LISINOPRIL
     Indication: Agitated depression
     Dosage: 20 MILLIGRAM, ONCE A DAY
     Route: 048
     Dates: start: 2008
  11. ROSUVASTATIN [Concomitant]
     Active Substance: ROSUVASTATIN
     Indication: Hypercholesterolaemia
     Dosage: 20 MILLIGRAM, ONCE A DAY
     Route: 048
     Dates: start: 2010
  12. METAMIZOLE [Concomitant]
     Active Substance: METAMIZOLE
     Indication: Chest pain
     Dosage: 750 MILLIGRAM, 3 TIMES A DAY
     Route: 048
     Dates: start: 202501
  13. HYDROMORPHONE [Concomitant]
     Active Substance: HYDROMORPHONE
     Indication: Chest pain
     Route: 048
     Dates: start: 20250310
  14. CLEMASTINE [Concomitant]
     Active Substance: CLEMASTINE
     Indication: Prophylaxis
     Route: 042
     Dates: start: 20250318, end: 20250408
  15. APREPITANT [Concomitant]
     Active Substance: APREPITANT
     Indication: Prophylaxis
     Route: 048
     Dates: start: 20250318, end: 20250410
  16. APREPITANT [Concomitant]
     Active Substance: APREPITANT
     Dosage: 80 MILLIGRAM, ONCE A DAY
     Route: 048
     Dates: start: 20250520, end: 20250521
  17. DEXAMETHASONE [Concomitant]
     Active Substance: DEXAMETHASONE
     Indication: Prophylaxis
     Route: 042
     Dates: start: 20250318, end: 20250408
  18. DEXAMETHASONE [Concomitant]
     Active Substance: DEXAMETHASONE
     Route: 042
     Dates: start: 20250520, end: 20250521
  19. GRANISETRON [Concomitant]
     Active Substance: GRANISETRON
     Indication: Prophylaxis
     Route: 042
     Dates: start: 20250318, end: 20250408
  20. GRANISETRON [Concomitant]
     Active Substance: GRANISETRON
     Dosage: 1 MILLIGRAM, ONCE A DAY
     Route: 042
     Dates: start: 20250520, end: 20250521

REACTIONS (3)
  - Vomiting [Recovered/Resolved]
  - Non-small cell lung cancer recurrent [Unknown]
  - Anaemia [Recovered/Resolved]

NARRATIVE: CASE EVENT DATE: 20250516
